FAERS Safety Report 6427963-7 (Version None)
Quarter: 2009Q4

REPORT INFORMATION
  Report Type: 
  Country: None (occurrence: None)
  Receive Date: 20091105
  Receipt Date: 20091029
  Transmission Date: 20100525
  Serious: Yes (Hospitalization)
  Sender: FDA-Public Use
  Company Number: PHEH2009US14017

PATIENT
  Sex: Male
  Weight: 59.4 kg

DRUGS (4)
  1. EXJADE [Suspect]
     Indication: IRON OVERLOAD
     Dosage: 2000 MG, QD
     Route: 048
  2. BLOOD CELLS, PACKED HUMAN [Concomitant]
     Dosage: UNK
     Dates: start: 20091006
  3. ASPIRIN [Concomitant]
     Dosage: 81 MG, DAILY
     Route: 048
  4. FOLIC ACID [Concomitant]
     Dosage: 1 MG, DAILY

REACTIONS (5)
  - ABDOMINAL PAIN [None]
  - BACK PAIN [None]
  - CHOLELITHIASIS [None]
  - SICKLE CELL ANAEMIA WITH CRISIS [None]
  - TRANSFUSION REACTION [None]
